FAERS Safety Report 10670642 (Version 2)
Quarter: 2015Q1

REPORT INFORMATION
  Report Type: Spontaneous
  Country: FR (occurrence: None)
  Receive Date: 20141219
  Receipt Date: 20150209
  Transmission Date: 20150720
  Serious: Yes (Hospitalization, Disabling)
  Sender: FDA-Public Use
  Company Number: FR2014GSK032984

PATIENT
  Age: 80 Year
  Sex: Male
  Weight: 80 kg

DRUGS (2)
  1. LEXOMIL (BROMAZEPAM) [Concomitant]
     Active Substance: BROMAZEPAM
  2. DEROXAT [Suspect]
     Active Substance: PAROXETINE HYDROCHLORIDE
     Indication: DEPRESSION
     Route: 048
     Dates: start: 201405

REACTIONS (7)
  - Hydrocephalus [None]
  - Cardiac failure [None]
  - Jugular vein distension [None]
  - Gait disturbance [None]
  - Nasal congestion [None]
  - Oedema [None]
  - Hepatojugular reflux [None]

NARRATIVE: CASE EVENT DATE: 2014
